FAERS Safety Report 6630243-8 (Version None)
Quarter: 2010Q1

REPORT INFORMATION
  Report Type: 
  Country: None (occurrence: None)
  Receive Date: 20100311
  Receipt Date: 20100303
  Transmission Date: 20100710
  Serious: Yes (Other)
  Sender: FDA-Public Use
  Company Number: A0849559A

PATIENT
  Age: 64 Year
  Sex: Male

DRUGS (7)
  1. ADVAIR DISKUS 100/50 [Suspect]
     Indication: CHRONIC OBSTRUCTIVE PULMONARY DISEASE
     Route: 055
     Dates: start: 20091201
  2. PROSTATE MEDICATION [Suspect]
  3. LEVAQUIN [Suspect]
     Indication: PNEUMONIA
     Route: 065
  4. DYAZIDE [Suspect]
     Route: 048
  5. CARDIZEM [Concomitant]
  6. CLONIDINE [Concomitant]
  7. UNSPECIFIED MEDICATION [Concomitant]

REACTIONS (6)
  - BEDRIDDEN [None]
  - CANDIDIASIS [None]
  - MALAISE [None]
  - ORAL DISCOMFORT [None]
  - PNEUMONIA [None]
  - RESIDUAL URINE [None]
